FAERS Safety Report 8829225 (Version 1)
Quarter: 2012Q4

REPORT INFORMATION
  Report Type: 
  Country: US (occurrence: US)
  Receive Date: 20121008
  Receipt Date: 20121008
  Transmission Date: 20130627
  Serious: Yes (Other)
  Sender: FDA-Public Use
  Company Number: US-ROCHE-1139105

PATIENT

DRUGS (2)
  1. GANCICLOVIR SODIUM [Suspect]
     Indication: PROPHYLAXIS AGAINST TRANSPLANT REJECTION
  2. ALEMTUZUMAB [Concomitant]

REACTIONS (4)
  - Pathogen resistance [Unknown]
  - Pneumonia cytomegaloviral [Unknown]
  - Cytomegalovirus infection [Unknown]
  - Cytomegalovirus gastrointestinal infection [Unknown]
